FAERS Safety Report 7423467-3 (Version None)
Quarter: 2011Q2

REPORT INFORMATION
  Report Type: 
  Country: None (occurrence: None)
  Receive Date: 20110419
  Receipt Date: 20110411
  Transmission Date: 20111010
  Serious: Yes (Other)
  Sender: FDA-Public Use
  Company Number: JP-B.I. PHARMACEUTICALS,INC./RIDGEFIELD-2011-BP-10970YA

PATIENT
  Sex: Male

DRUGS (1)
  1. HARNAL (TAMSULOSIN) ORODISPERSABLE CR [Suspect]
     Route: 048

REACTIONS (1)
  - URINARY RETENTION [None]
